FAERS Safety Report 15106612 (Version 1)
Quarter: 2018Q3

REPORT INFORMATION
  Report Type: Spontaneous
  Country: US (occurrence: US)
  Receive Date: 20180704
  Receipt Date: 20180704
  Transmission Date: 20181010
  Serious: No
  Sender: FDA-Public Use
  Company Number: US-SA-2018SA098536

PATIENT
  Age: 51 Year
  Sex: Female

DRUGS (1)
  1. WELCHOL [Suspect]
     Active Substance: COLESEVELAM HYDROCHLORIDE
     Dosage: 3.75 G,UNK
     Route: 048
     Dates: end: 2018

REACTIONS (1)
  - Incorrect drug administration duration [Recovered/Resolved]
